FAERS Safety Report 14565298 (Version 3)
Quarter: 2018Q2

REPORT INFORMATION
  Report Type: Report from Study
  Country: US (occurrence: US)
  Receive Date: 20180223
  Receipt Date: 20180508
  Transmission Date: 20180711
  Serious: Yes (Hospitalization)
  Sender: FDA-Public Use
  Company Number: US-AMGEN-USASL2018024597

PATIENT
  Age: 85 Year
  Sex: Female

DRUGS (1)
  1. ENBREL [Suspect]
     Active Substance: ETANERCEPT
     Indication: RHEUMATOID ARTHRITIS
     Dosage: 50 MG, QWK
     Route: 065

REACTIONS (5)
  - Lower respiratory tract infection [Unknown]
  - Injection site erythema [Unknown]
  - Injection site pruritus [Unknown]
  - Muscular weakness [Unknown]
  - Injection site swelling [Unknown]

NARRATIVE: CASE EVENT DATE: 201803
